FAERS Safety Report 18246792 (Version 1)
Quarter: 2020Q3

REPORT INFORMATION
  Report Type: Spontaneous
  Country: US (occurrence: US)
  Receive Date: 20200909
  Receipt Date: 20200909
  Transmission Date: 20201103
  Serious: No
  Sender: FDA-Public Use
  Company Number: US-MYLANLABS-2020M1073244

PATIENT
  Sex: Female

DRUGS (2)
  1. LEVONORGESTREL AND ETHINYL ESTRADIOL, AND ETHINYL ESTRADIOL TABLETS [Suspect]
     Active Substance: ETHINYL ESTRADIOL\LEVONORGESTREL
     Indication: CONTRACEPTION
     Dosage: ONE ACTIVE TABLET DAILY, DISCARD PLACEBO
     Route: 048
     Dates: end: 20200816
  2. LEVONORGESTREL AND ETHINYL ESTRADIOL, AND ETHINYL ESTRADIOL TABLETS [Suspect]
     Active Substance: ETHINYL ESTRADIOL\LEVONORGESTREL
     Indication: MENSTRUAL DISORDER

REACTIONS (3)
  - Off label use [Not Recovered/Not Resolved]
  - Amenorrhoea [Recovered/Resolved]
  - Metrorrhagia [Recovered/Resolved]
